FAERS Safety Report 25450815 (Version 1)
Quarter: 2025Q2

REPORT INFORMATION
  Report Type: Spontaneous
  Country: CN (occurrence: CN)
  Receive Date: 20250618
  Receipt Date: 20250618
  Transmission Date: 20250716
  Serious: Yes (Other)
  Sender: ORGANON
  Company Number: CN-ORGANON-O2506CHN001286

PATIENT
  Age: 46 Year
  Sex: Female
  Weight: 47 kg

DRUGS (3)
  1. DIPROSPAN [Suspect]
     Active Substance: BETAMETHASONE DIPROPIONATE\BETAMETHASONE SODIUM PHOSPHATE
     Indication: Arthralgia
     Dosage: INTRA-ARTICULAR ADMINISTRATION, 7MG, QD
     Route: 014
     Dates: start: 20250613, end: 20250613
  2. HYALURONATE SODIUM [Suspect]
     Active Substance: HYALURONATE SODIUM
     Indication: Arthralgia
     Dosage: INTRA-ARTICULAR ADMINISTRATION, 25MG, QD
     Route: 014
     Dates: start: 20250613, end: 20250613
  3. ROPIVACAINE HYDROCHLORIDE [Suspect]
     Active Substance: ROPIVACAINE HYDROCHLORIDE
     Indication: Arthralgia
     Dosage: INTRA-ARTICULAR ADMINISTRATION, 100MG, QD
     Route: 014
     Dates: start: 20250613, end: 20250613

REACTIONS (2)
  - Rash [Recovering/Resolving]
  - Product use in unapproved indication [Unknown]

NARRATIVE: CASE EVENT DATE: 20250613
